FAERS Safety Report 10175817 (Version 1)
Quarter: 2014Q2

REPORT INFORMATION
  Report Type: Spontaneous
  Country: US (occurrence: US)
  Receive Date: 20140516
  Receipt Date: 20140516
  Transmission Date: 20141212
  Serious: Yes (Other)
  Sender: FDA-Public Use
  Company Number: US-009507513-1405USA005331

PATIENT
  Sex: Male
  Weight: 70.75 kg

DRUGS (13)
  1. COZAAR [Suspect]
     Dosage: UNK
     Route: 048
  2. RANEXA [Suspect]
     Indication: ANGINA PECTORIS
     Dosage: 500MG DAILY DOSE
     Route: 048
  3. RANEXA [Suspect]
     Indication: DYSPNOEA EXERTIONAL
     Dosage: 1000MG DAILY DOSE
  4. RANEXA [Suspect]
     Indication: CORONARY ARTERY DISEASE
  5. AMLODIPINE [Suspect]
     Dosage: 10MG DAILY DOSE
     Route: 048
  6. THIOCTIC ACID [Suspect]
     Dosage: UNK
  7. SIMVASTATIN TABLETS, USP [Concomitant]
     Dosage: UNK
     Route: 048
  8. ATENOLOL [Concomitant]
     Dosage: UNK
  9. PLAVIX [Concomitant]
     Dosage: UNK
  10. ASPIRIN [Concomitant]
     Dosage: UNK
  11. LEVOTHROID [Concomitant]
     Dosage: UNK
  12. NORTRIPTYLINE [Concomitant]
     Dosage: UNK
  13. NOVOLOG [Concomitant]
     Dosage: UNK

REACTIONS (5)
  - Tremor [Recovered/Resolved]
  - Blood creatinine increased [Recovered/Resolved]
  - Somnolence [Recovered/Resolved]
  - Dizziness [Recovered/Resolved]
  - Asthenia [Recovered/Resolved]
